FAERS Safety Report 5761613-8 (Version None)
Quarter: 2008Q2

REPORT INFORMATION
  Report Type: 
  Country: None (occurrence: None)
  Receive Date: 20080606
  Receipt Date: 20080526
  Transmission Date: 20081010
  Serious: Yes (Life-Threatening, Other)
  Sender: FDA-Public Use
  Company Number: NZ-PFIZER INC-2008026455

PATIENT
  Sex: Female
  Weight: 44 kg

DRUGS (6)
  1. CHANTIX [Suspect]
     Indication: SMOKING CESSATION THERAPY
     Route: 048
     Dates: start: 20080310, end: 20080311
  2. EFORMOTEROL FUMARATE [Concomitant]
     Indication: ASTHMA
     Route: 055
  3. BRICANYL [Concomitant]
     Indication: ASTHMA
     Dosage: TEXT:250 TO 500 MICROGRAM
     Route: 055
  4. PULMICORT [Concomitant]
     Indication: ASTHMA
     Route: 055
  5. CIPROFLOXACIN HCL [Concomitant]
     Indication: LOWER RESPIRATORY TRACT INFECTION
     Route: 048
     Dates: start: 20080306, end: 20080316
  6. PREDNISONE TAB [Concomitant]
     Route: 048
     Dates: start: 20080306, end: 20080316

REACTIONS (7)
  - ASTHMA [None]
  - CHEST DISCOMFORT [None]
  - DIZZINESS [None]
  - FOAMING AT MOUTH [None]
  - HYPERSENSITIVITY [None]
  - INSOMNIA [None]
  - SUFFOCATION FEELING [None]
